FAERS Safety Report 18787104 (Version 1)
Quarter: 2021Q1

REPORT INFORMATION
  Report Type: Spontaneous
  Country: US (occurrence: US)
  Receive Date: 20210125
  Receipt Date: 20210125
  Transmission Date: 20210419
  Serious: No
  Sender: FDA-Public Use
  Company Number: US-ROCHE-2629117

PATIENT
  Sex: Female
  Weight: 63.56 kg

DRUGS (7)
  1. RITUXAN [Suspect]
     Active Substance: RITUXIMAB
     Indication: RHEUMATOID ARTHRITIS
     Dosage: TWO?1000 MG IV WITHIN 2 WEEKS EVERY 6 MONTHS
     Route: 042
     Dates: start: 2018
  2. METHOTREXATE. [Suspect]
     Active Substance: METHOTREXATE
     Indication: PRODUCT USED FOR UNKNOWN INDICATION
     Route: 065
  3. VIT D [Concomitant]
     Active Substance: VITAMIN D NOS
     Dosage: ONGOING
     Route: 048
  4. PLAQUENIL [Concomitant]
     Active Substance: HYDROXYCHLOROQUINE SULFATE
     Dosage: 1 AND 1/2 PILLS TWICE A DAY, ONGOING
     Dates: start: 202002
  5. GABAPENTIN. [Concomitant]
     Active Substance: GABAPENTIN
     Indication: JOINT STIFFNESS
     Dosage: ONGOING
  6. PLAQUENIL [Concomitant]
     Active Substance: HYDROXYCHLOROQUINE SULFATE
     Dosage: 2 PILLS TWICE A DAY, ONGOING? NO
     Dates: start: 202002
  7. CREON [Concomitant]
     Active Substance: PANCRELIPASE AMYLASE\PANCRELIPASE LIPASE\PANCRELIPASE PROTEASE
     Indication: PANCREATECTOMY
     Dosage: 10 PILLS PER DAY ;ONGOING
     Dates: start: 2016

REACTIONS (5)
  - Arthralgia [Not Recovered/Not Resolved]
  - Bone pain [Not Recovered/Not Resolved]
  - Drug ineffective [Unknown]
  - Gastric disorder [Unknown]
  - Pain in extremity [Not Recovered/Not Resolved]
